FAERS Safety Report 4501920-X (Version None)
Quarter: 2004Q4

REPORT INFORMATION
  Report Type: 
  Country: None (occurrence: None)
  Receive Date: 20041109
  Receipt Date: 20041028
  Transmission Date: 20050328
  Serious: Yes (Life-Threatening, Hospitalization)
  Sender: FDA-Public Use
  Company Number: 2004225092JP

PATIENT
  Age: 13 Year
  Sex: Male
  Weight: 51 kg

DRUGS (7)
  1. GENOTROPIN [Suspect]
     Indication: BODY HEIGHT BELOW NORMAL
     Dosage: 1.4 + 1.6 MG, QD, SUBCUTANEOUS
     Route: 058
     Dates: start: 20040401, end: 20040709
  2. GENOTROPIN [Suspect]
     Indication: BODY HEIGHT BELOW NORMAL
     Dosage: 1.4 + 1.6 MG, QD, SUBCUTANEOUS
     Route: 058
     Dates: start: 20011004
  3. MIRADOL [Concomitant]
  4. LORAZEPAM [Concomitant]
  5. SLOW-K [Concomitant]
  6. ALFAROL (ALFACALCIDL) [Concomitant]
  7. CALCIUM CARBONATE [Concomitant]

REACTIONS (18)
  - ABDOMINAL PAIN [None]
  - ABNORMAL SENSATION IN EYE [None]
  - ANOREXIA [None]
  - ANXIETY [None]
  - CENTRAL PONTINE MYELINOLYSIS [None]
  - CONVULSION [None]
  - DIABETES MELLITUS [None]
  - DIABETIC HYPEROSMOLAR COMA [None]
  - GLUCOSE URINE PRESENT [None]
  - GLYCOSYLATED HAEMOGLOBIN INCREASED [None]
  - HYPOGLYCAEMIA [None]
  - LOOSE STOOLS [None]
  - NAUSEA [None]
  - PSYCHOSOMATIC DISEASE [None]
  - SENSE OF OPPRESSION [None]
  - SOMNOLENCE [None]
  - TETANY [None]
  - WEIGHT DECREASED [None]
